FAERS Safety Report 20677721 (Version 10)
Quarter: 2022Q4

REPORT INFORMATION
  Report Type: Report from Study
  Country: MX (occurrence: MX)
  Receive Date: 20220406
  Receipt Date: 20221223
  Transmission Date: 20230112
  Serious: Yes (Other)
  Sender: FDA-Public Use
  Company Number: MX-NOVARTISPH-NVSC2021MX213589

PATIENT
  Age: 49 Year
  Sex: Female
  Weight: 61 kg

DRUGS (2)
  1. TASIGNA [Suspect]
     Active Substance: NILOTINIB
     Indication: Chronic myeloid leukaemia
     Dosage: 200 MG, QD
     Route: 048
     Dates: start: 20210901
  2. TASIGNA [Suspect]
     Active Substance: NILOTINIB
     Dosage: UNK
     Route: 048

REACTIONS (38)
  - Epilepsy [Unknown]
  - Pneumonia [Unknown]
  - Gastritis [Unknown]
  - Platelet count decreased [Recovering/Resolving]
  - Constipation [Unknown]
  - Blood cholesterol abnormal [Unknown]
  - Blood triglycerides abnormal [Unknown]
  - Oropharyngeal discomfort [Unknown]
  - Oversensing [Unknown]
  - Sleep disorder [Unknown]
  - Somnolence [Unknown]
  - COVID-19 [Unknown]
  - Crying [Unknown]
  - Agitation [Unknown]
  - Menstruation delayed [Unknown]
  - Tooth disorder [Unknown]
  - Dental caries [Recovered/Resolved]
  - Contraindicated product prescribed [Unknown]
  - Dry skin [Unknown]
  - Decreased appetite [Recovering/Resolving]
  - Asthenia [Recovering/Resolving]
  - Muscular weakness [Recovering/Resolving]
  - Vomiting [Recovering/Resolving]
  - Back pain [Unknown]
  - Weight increased [Unknown]
  - Abdominal pain upper [Recovering/Resolving]
  - Abdominal discomfort [Unknown]
  - Abdominal pain [Recovering/Resolving]
  - Diarrhoea [Recovering/Resolving]
  - Headache [Recovering/Resolving]
  - Weight decreased [Recovering/Resolving]
  - Malaise [Unknown]
  - Depression [Unknown]
  - Fatigue [Unknown]
  - Contusion [Unknown]
  - Arthralgia [Recovered/Resolved]
  - Cough [Unknown]
  - Pruritus [Unknown]

NARRATIVE: CASE EVENT DATE: 20210901
